FAERS Safety Report 14769056 (Version 1)
Quarter: 2018Q2

REPORT INFORMATION
  Report Type: Spontaneous
  Country: US (occurrence: US)
  Receive Date: 20180417
  Receipt Date: 20180417
  Transmission Date: 20180711
  Serious: No
  Sender: FDA-Public Use
  Company Number: US-BAYER-2018-066565

PATIENT
  Age: 42 Year
  Sex: Male
  Weight: 84 kg

DRUGS (4)
  1. LOTRIMIN AF ANTIFUNGAL [Suspect]
     Active Substance: MICONAZOLE NITRATE
     Indication: THERAPEUTIC SKIN CARE TOPICAL
     Dosage: 2 DF, QD
     Route: 061
     Dates: start: 20180317, end: 20180401
  2. LOTRIMIN ANTIFUNGAL (MICONAZOLE NITRATE) [Suspect]
     Active Substance: MICONAZOLE NITRATE
     Dosage: 2 DF, QD
     Route: 061
     Dates: start: 20180317, end: 20180401
  3. LOTRIMIN AF ANTIFUNGAL [Suspect]
     Active Substance: MICONAZOLE NITRATE
     Indication: THERAPEUTIC SKIN CARE TOPICAL
     Dosage: 2 DF, QD
     Route: 061
     Dates: start: 20180317, end: 20180401
  4. LOTRIMIN ULTRA [Suspect]
     Active Substance: BUTENAFINE HYDROCHLORIDE
     Dosage: 2 DF, QD
     Route: 061
     Dates: start: 20180317, end: 20180401

REACTIONS (1)
  - Drug ineffective [Unknown]
